FAERS Safety Report 26104776 (Version 1)
Quarter: 2025Q4

REPORT INFORMATION
  Report Type: Spontaneous
  Country: EU (occurrence: EU)
  Receive Date: 20251130
  Receipt Date: 20251130
  Transmission Date: 20260117
  Serious: Yes (Other)
  Sender: ALKEM
  Company Number: EU-ALKEM LABORATORIES LIMITED-IT-ALKEM-2025-08794

PATIENT
  Age: 59 Year
  Sex: Female

DRUGS (6)
  1. MYCOPHENOLATE MOFETIL [Suspect]
     Active Substance: MYCOPHENOLATE MOFETIL
     Indication: Immunosuppression
     Dosage: 360 MILLIGRAM, BID
     Route: 065
  2. TACROLIMUS [Suspect]
     Active Substance: TACROLIMUS
     Indication: Immunosuppression
     Dosage: UNK
     Route: 065
  3. SIROLIMUS [Suspect]
     Active Substance: SIROLIMUS
     Indication: Immunosuppression
     Dosage: UNK
     Route: 065
  4. INSULIN NOS [Concomitant]
     Active Substance: INSULIN NOS
     Indication: Type 1 diabetes mellitus
     Dosage: 18 INTERNATIONAL UNIT, QD (BASAL-BOLUS) (AND BOLUSES OF 2, 6, AND 6 IU AT MEALS)
     Route: 065
  5. INSULIN NOS [Concomitant]
     Active Substance: INSULIN NOS
     Dosage: UNK (INFUSION VIA INSULIN PUMP)
     Route: 058
     Dates: start: 2005
  6. REPARIXIN [Concomitant]
     Active Substance: REPARIXIN
     Indication: Immunosuppression
     Dosage: 2.772 MILLIGRAM/KILOGRAM INITIATED ON DAY 0 AND CONTINUED FOR 7 DAYS)
     Route: 065

REACTIONS (5)
  - Toxic encephalopathy [Unknown]
  - Orthostatic hypotension [Unknown]
  - Asthenia [Unknown]
  - Arthralgia [Unknown]
  - Therapy partial responder [Unknown]
